FAERS Safety Report 9832378 (Version 4)
Quarter: 2014Q2

REPORT INFORMATION
  Report Type: Spontaneous
  Country: US (occurrence: US)
  Receive Date: 20140121
  Receipt Date: 20140606
  Transmission Date: 20141212
  Serious: Yes (Hospitalization, Other)
  Sender: FDA-Public Use
  Company Number: US-BAXTER-2014BAX002327

PATIENT
  Age: 66 Year
  Sex: Female

DRUGS (2)
  1. DIANEAL LOW CALCIUM [Suspect]
     Indication: PERITONEAL DIALYSIS
     Route: 033
     Dates: end: 201401
  2. DIANEAL LOW CALCIUM [Suspect]
     Indication: PERITONEAL DIALYSIS
     Route: 033
     Dates: end: 201401

REACTIONS (5)
  - Pulmonary oedema [Recovered/Resolved]
  - Catheter site infection [Recovered/Resolved]
  - Influenza [Unknown]
  - Peripheral swelling [Unknown]
  - Asthenia [Recovered/Resolved]
